FAERS Safety Report 15370731 (Version 1)
Quarter: 2018Q3

REPORT INFORMATION
  Report Type: Report from Study
  Country: US (occurrence: US)
  Receive Date: 20180911
  Receipt Date: 20180911
  Transmission Date: 20181010
  Serious: Yes (Hospitalization)
  Sender: FDA-Public Use
  Company Number: US-BAYER-2018-166978

PATIENT
  Age: 79 Year
  Sex: Female

DRUGS (1)
  1. BETASERON [Suspect]
     Active Substance: INTERFERON BETA-1B
     Indication: MULTIPLE SCLEROSIS
     Dosage: 0.3 MG, QOD
     Dates: start: 20180210

REACTIONS (7)
  - Injection site discharge [Not Recovered/Not Resolved]
  - Injection site infection [Not Recovered/Not Resolved]
  - Fatigue [Not Recovered/Not Resolved]
  - Dyspnoea [Not Recovered/Not Resolved]
  - Injection site ulcer [Not Recovered/Not Resolved]
  - Blood count abnormal [Not Recovered/Not Resolved]
  - Blood iron decreased [Not Recovered/Not Resolved]

NARRATIVE: CASE EVENT DATE: 201806
